FAERS Safety Report 9294288 (Version 6)
Quarter: 2014Q2

REPORT INFORMATION
  Report Type: Spontaneous
  Country: US (occurrence: US)
  Receive Date: 20130516
  Receipt Date: 20140428
  Transmission Date: 20141212
  Serious: Yes (Hospitalization, Disabling, Other)
  Sender: FDA-Public Use
  Company Number: US-009507513-1305USA009954

PATIENT
  Sex: Male
  Weight: 69.93 kg

DRUGS (2)
  1. PROPECIA [Suspect]
     Indication: ALOPECIA
     Dosage: 1 MG, QD
     Route: 048
     Dates: start: 1998, end: 200110
  2. PROPECIA [Suspect]
     Dosage: 1 MG, QD
     Route: 048
     Dates: start: 2002, end: 200407

REACTIONS (44)
  - Prostate cancer [Unknown]
  - Hip arthroplasty [Unknown]
  - Cardiac disorder [Unknown]
  - Cardiac disorder [Not Recovered/Not Resolved]
  - Coronary arterial stent insertion [Unknown]
  - Osteonecrosis [Unknown]
  - HIV test positive [Unknown]
  - Prostatomegaly [Unknown]
  - Prostatic calcification [Unknown]
  - Flank pain [Unknown]
  - Prostatic specific antigen increased [Unknown]
  - Protein urine [Unknown]
  - Radiotherapy to prostate [Unknown]
  - Acquired immunodeficiency syndrome [Unknown]
  - Abdominal pain lower [Unknown]
  - Arteriosclerosis coronary artery [Unknown]
  - Cervical radiculopathy [Unknown]
  - Fatigue [Not Recovered/Not Resolved]
  - Diarrhoea [Unknown]
  - Arthralgia [Unknown]
  - Neuropathy peripheral [Unknown]
  - Pain [Not Recovered/Not Resolved]
  - Asthenia [Unknown]
  - Coronary artery disease [Unknown]
  - Anxiety [Unknown]
  - Weight decreased [Unknown]
  - Lymphadenopathy [Unknown]
  - Dyspnoea [Unknown]
  - Dysphagia [Unknown]
  - Diarrhoea [Unknown]
  - Urine output increased [Unknown]
  - Muscular weakness [Unknown]
  - Disturbance in attention [Unknown]
  - Arthralgia [Unknown]
  - Arthralgia [Unknown]
  - Urine flow decreased [Unknown]
  - Asthenia [Unknown]
  - Muscle atrophy [Unknown]
  - Nocturia [Unknown]
  - Calculus urinary [Unknown]
  - Erectile dysfunction [Not Recovered/Not Resolved]
  - Depression [Unknown]
  - Libido decreased [Unknown]
  - Sexual dysfunction [Not Recovered/Not Resolved]
